FAERS Safety Report 14313893 (Version 2)
Quarter: 2018Q1

REPORT INFORMATION
  Report Type: Report from Study
  Country: FR (occurrence: FR)
  Receive Date: 20171221
  Receipt Date: 20180215
  Transmission Date: 20180509
  Serious: Yes (Death)
  Sender: FDA-Public Use
  Company Number: FR-AUROBINDO-AUR-APL-2017-46046

PATIENT
  Age: 25 Year
  Sex: Male

DRUGS (1)
  1. AZITHROMYCIN ANHYDROUS. [Suspect]
     Active Substance: AZITHROMYCIN ANHYDROUS
     Indication: OBLITERATIVE BRONCHIOLITIS
     Dosage: 250 MG, DAILY, 3 TIMES A WEEK
     Route: 048
     Dates: start: 20141016, end: 20150618

REACTIONS (1)
  - Leukaemia recurrent [Fatal]

NARRATIVE: CASE EVENT DATE: 20151001
